FAERS Safety Report 14267951 (Version 1)
Quarter: 2017Q4

REPORT INFORMATION
  Report Type: Spontaneous
  Country: US (occurrence: US)
  Receive Date: 20171211
  Receipt Date: 20171211
  Transmission Date: 20180321
  Serious: No
  Sender: FDA-Public Use
  Company Number: US-ROCHE-1997312

PATIENT

DRUGS (1)
  1. RITUXAN HYCELA [Suspect]
     Active Substance: HYALURONIDASE (HUMAN RECOMBINANT)\RITUXIMAB
     Indication: PRODUCT USED FOR UNKNOWN INDICATION
     Dosage: INFUSION STOPPED BEFORE FULL DOSE
     Route: 058
     Dates: start: 20170921, end: 20170921

REACTIONS (3)
  - No adverse event [Unknown]
  - Drug dose omission [Unknown]
  - Incorrect route of drug administration [Unknown]

NARRATIVE: CASE EVENT DATE: 20170921
